FAERS Safety Report 8062210-4 (Version None)
Quarter: 2012Q1

REPORT INFORMATION
  Report Type: 
  Country: None (occurrence: None)
  Receive Date: 20120120
  Receipt Date: 20120120
  Transmission Date: 20120608
  Serious: Yes (Death)
  Sender: FDA-Public Use
  Company Number: None

PATIENT
  Age: 64 Year
  Sex: Male

DRUGS (8)
  1. SIMVASTATIN [Concomitant]
  2. FLUOXETINE [Concomitant]
  3. REVLIMID [Suspect]
     Indication: CHRONIC LYMPHOCYTIC LEUKAEMIA
     Dosage: 10MG DAILY ORALY
     Route: 048
     Dates: start: 20110201, end: 20110301
  4. ALLOPURINOL [Concomitant]
  5. LORAZEPAM [Concomitant]
  6. ACYCLOVIR [Concomitant]
  7. FUROSEMIDE [Concomitant]
  8. AMLODIPINE [Concomitant]

REACTIONS (2)
  - ONCOLOGIC COMPLICATION [None]
  - NO THERAPEUTIC RESPONSE [None]
